FAERS Safety Report 10448794 (Version 2)
Quarter: 2014Q3

REPORT INFORMATION
  Report Type: Spontaneous
  Country: GB (occurrence: GB)
  Receive Date: 20140912
  Receipt Date: 20140912
  Transmission Date: 20150326
  Serious: Yes (Other)
  Sender: FDA-Public Use
  Company Number: GB-UCBSA-2014008481

PATIENT
  Age: 69 Year
  Sex: Female

DRUGS (1)
  1. CIMZIA [Suspect]
     Active Substance: CERTOLIZUMAB PEGOL
     Indication: RHEUMATOID ARTHRITIS
     Dosage: 200 MG, EV 2 WEEKS(QOW) (FORTNIGHTLY)
     Route: 058
     Dates: start: 20140721

REACTIONS (3)
  - Epistaxis [Unknown]
  - Rheumatoid arthritis [Unknown]
  - Injection site rash [Unknown]

NARRATIVE: CASE EVENT DATE: 2014
